FAERS Safety Report 6688492-9 (Version None)
Quarter: 2010Q2

REPORT INFORMATION
  Report Type: 
  Country: None (occurrence: None)
  Receive Date: 20100420
  Receipt Date: 20100409
  Transmission Date: 20101027
  Serious: Yes (Hospitalization)
  Sender: FDA-Public Use
  Company Number: JP-BAYER-200914212BYL

PATIENT
  Age: 61 Year
  Sex: Female

DRUGS (1)
  1. ASPIRIN [Suspect]
     Indication: CAROTID ARTERY OCCLUSION
     Route: 048

REACTIONS (4)
  - GASTRIC ULCER HAEMORRHAGE [None]
  - HAEMATEMESIS [None]
  - SHOCK HAEMORRHAGIC [None]
  - STRESS CARDIOMYOPATHY [None]
